FAERS Safety Report 4117226 (Version 29)
Quarter: 2014Q1

REPORT INFORMATION
  Report Type: Spontaneous
  Country: US (occurrence: US)
  Receive Date: 20040401
  Receipt Date: 20140220
  Transmission Date: 20141002
  Serious: Yes (Other)
  Sender: FDA-Public Use
  Company Number: PHEH2004US03404

PATIENT
  Age: 64 Year
  Sex: Male
  Weight: 74.83 kg

DRUGS (37)
  1. AREDIA [Suspect]
     Indication: HYPOGONADISM
     Dosage: 30 MG,
     Route: 041
     Dates: start: 20020812, end: 200212
  2. ZOMETA [Suspect]
     Dosage: 4 MG, QMO
     Route: 042
     Dates: start: 20021115
  3. FOSAMAX [Suspect]
     Dosage: 70 MG ONE TIME PER WEEK
     Dates: start: 20011115, end: 200212
  4. LUPRON [Concomitant]
     Dosage: 22.5 MG, QUARTERLY
     Route: 030
     Dates: start: 20020507
  5. LUPRON [Concomitant]
     Dosage: 7.5 MG, UNK
     Dates: start: 2002
  6. HYDROCORTISONE [Concomitant]
     Indication: PROPHYLAXIS
     Dosage: 20 MG, BID
     Route: 048
     Dates: start: 20030729
  7. CELEBREX [Concomitant]
     Dosage: 200 MG, BID
     Route: 048
     Dates: start: 20010101
  8. TAMOXIFEN [Concomitant]
     Indication: GYNAECOMASTIA
     Dosage: 10 MG, BID
  9. TRAZODONE [Concomitant]
     Dosage: 100 MG, QD
     Route: 048
     Dates: start: 20040130
  10. TRAZODONE [Concomitant]
     Dosage: 50 MG, DAY
     Dates: start: 20020714
  11. NIZORAL [Concomitant]
  12. AVODART [Concomitant]
     Dosage: 0.5 MG, QD
     Route: 048
     Dates: start: 20030224
  13. PRIMAXIN [Concomitant]
     Dates: start: 2002
  14. VANCOMYCIN [Concomitant]
     Dates: start: 2002
  15. VANCOMYCIN [Concomitant]
     Route: 042
     Dates: start: 20041217
  16. CASODEX [Concomitant]
     Dates: start: 2002
  17. PROSCAR [Concomitant]
     Dosage: 5 MG, QD
     Route: 048
  18. FLOMAX ^BOEHRINGER INGELHEIM^ [Concomitant]
     Dosage: 0.4 MG, PRN
  19. AMBIEN [Concomitant]
     Dosage: 10 MG,
     Dates: start: 19950617
  20. HALCION [Concomitant]
  21. METROGEL [Concomitant]
  22. VITAMINS NOS [Concomitant]
  23. ANUSOL                             /01604901/ [Concomitant]
     Route: 054
     Dates: start: 20021024
  24. GLUCOSAMINE [Concomitant]
     Dosage: 750 MG, DAY
     Dates: start: 1998
  25. KEFLEX                                  /UNK/ [Concomitant]
  26. METAMUCIL [Concomitant]
  27. ACIPHEX [Concomitant]
  28. CALCITRIOL [Concomitant]
     Dosage: 0.5 UG, UNK
     Dates: start: 2004
  29. MELATONIN [Concomitant]
     Dosage: 4.5 MG, UNK
     Dates: start: 2000
  30. SIMVASTATIN [Concomitant]
     Dosage: 10 MG, UNK
     Dates: start: 2004
  31. VALERIAN [Concomitant]
     Dosage: 800 MG, UNK
  32. LORAZEPAM [Concomitant]
  33. TOBRADEX [Concomitant]
  34. PREVACID [Concomitant]
     Dosage: 30 MG, UNK
     Route: 048
  35. EVISTA [Concomitant]
     Dosage: 60 MG, QD
  36. LEUKINE [Concomitant]
  37. HEPARIN [Concomitant]

REACTIONS (117)
  - Osteonecrosis of jaw [Not Recovered/Not Resolved]
  - Pain [Not Recovered/Not Resolved]
  - Injury [Unknown]
  - Abscess jaw [Unknown]
  - Osteomyelitis [Not Recovered/Not Resolved]
  - Wound dehiscence [Not Recovered/Not Resolved]
  - Bone swelling [Unknown]
  - Pain in jaw [Unknown]
  - Fistula discharge [Unknown]
  - Gingival oedema [Unknown]
  - Dental fistula [Not Recovered/Not Resolved]
  - Toothache [Unknown]
  - Face oedema [Unknown]
  - Gingival erythema [Unknown]
  - Gingival swelling [Unknown]
  - Submandibular mass [Unknown]
  - Impaired healing [Not Recovered/Not Resolved]
  - Cellulitis [Unknown]
  - Anxiety [Unknown]
  - Disability [Not Recovered/Not Resolved]
  - Jaw cyst [Unknown]
  - Anhedonia [Not Recovered/Not Resolved]
  - Anaemia of chronic disease [Not Recovered/Not Resolved]
  - Dysphagia [Unknown]
  - Tooth infection [Not Recovered/Not Resolved]
  - Osteopenia [Not Recovered/Not Resolved]
  - Libido decreased [Not Recovered/Not Resolved]
  - Perineal pain [Recovering/Resolving]
  - Amnesia [Not Recovered/Not Resolved]
  - Impetigo [Unknown]
  - Rhinitis [Unknown]
  - Skin lesion [Unknown]
  - Blood testosterone decreased [Unknown]
  - Diverticulum [Unknown]
  - Bladder diverticulum [Unknown]
  - Genital rash [Unknown]
  - Ear infection [Unknown]
  - Balanoposthitis [Unknown]
  - Lymphadenopathy [Unknown]
  - Pneumonia viral [Unknown]
  - Nasopharyngitis [Unknown]
  - Pyrexia [Unknown]
  - Cough [Unknown]
  - Lung infiltration [Unknown]
  - Benign oesophageal neoplasm [Unknown]
  - Oesophageal stenosis [Recovering/Resolving]
  - Hiatus hernia [Unknown]
  - Abdominal pain upper [Unknown]
  - Dyspepsia [Unknown]
  - Gastrooesophageal reflux disease [Unknown]
  - Neoplasm progression [Unknown]
  - Intervertebral disc degeneration [Unknown]
  - Malignant neoplasm progression [Unknown]
  - Metastases to spine [Unknown]
  - Bone lesion [Unknown]
  - Intervertebral disc protrusion [Unknown]
  - Eosinophilia [Recovered/Resolved]
  - Urinary incontinence [Unknown]
  - Kyphosis [Unknown]
  - Haemangioma of bone [Unknown]
  - Lumbar spinal stenosis [Unknown]
  - Vertebral foraminal stenosis [Unknown]
  - Scoliosis [Unknown]
  - Vitamin B12 deficiency [Unknown]
  - Adrenal insufficiency [Unknown]
  - Epididymitis [Unknown]
  - Testicular pain [Unknown]
  - Osteoporosis [Unknown]
  - Peptic ulcer [Unknown]
  - Seborrhoeic keratosis [Unknown]
  - Deafness [Unknown]
  - Lipoma [Unknown]
  - Basal cell carcinoma [Unknown]
  - Hypertension [Unknown]
  - Erectile dysfunction [Unknown]
  - Hypercholesterolaemia [Unknown]
  - Hot flush [Unknown]
  - Pelvic pain [Unknown]
  - Prostate tenderness [Unknown]
  - Malaise [Unknown]
  - Fatigue [Unknown]
  - Headache [Unknown]
  - Poor quality sleep [Unknown]
  - Neuralgia [Unknown]
  - Insomnia [Unknown]
  - Rash [Unknown]
  - Sinusitis [Unknown]
  - Dizziness [Unknown]
  - Constipation [Unknown]
  - Arthralgia [Unknown]
  - Hand deformity [Unknown]
  - Osteoarthritis [Unknown]
  - Arteriosclerosis coronary artery [Unknown]
  - Metastases to bone [Unknown]
  - Hepatitis [Unknown]
  - Spinal osteoarthritis [Unknown]
  - Perirectal abscess [Unknown]
  - Abdominal distension [Unknown]
  - Regurgitation [Unknown]
  - Bone erosion [Unknown]
  - Mass [Unknown]
  - Pathological fracture [Unknown]
  - Actinomycosis [Unknown]
  - Osteosclerosis [Unknown]
  - Nasal septum deviation [Unknown]
  - Vision blurred [Unknown]
  - Epistaxis [Unknown]
  - Dyspnoea [Unknown]
  - Haemoptysis [Unknown]
  - Haematemesis [Unknown]
  - Melaena [Unknown]
  - Muscle atrophy [Unknown]
  - Confusional state [Unknown]
  - Convulsion [Unknown]
  - Arthropathy [Unknown]
  - Gait disturbance [Unknown]
  - Proctalgia [Unknown]
